FAERS Safety Report 8023266 (Version 2)
Quarter: 2016Q3

REPORT INFORMATION
  Report Type: Spontaneous
  Country: JP (occurrence: JP)
  Receive Date: 20110706
  Receipt Date: 20160823
  Transmission Date: 20161109
  Serious: Yes (Life-Threatening, Other)
  Sender: FDA-Public Use
  Company Number: JP-PFIZER INC-JP-WYE-H18222810

PATIENT
  Age: 77 Year
  Sex: Female
  Weight: 54 kg

DRUGS (10)
  1. AZULENE SODIUM SULFONATE/LEVOGLUTAMIDE [Concomitant]
     Indication: GASTRIC DISORDER
     Dosage: 2.01 G, 1X/DAY
     Route: 048
     Dates: start: 20100409, end: 20100412
  2. LOXONIN [Suspect]
     Active Substance: LOXOPROFEN SODIUM
     Indication: ANALGESIC THERAPY
     Dosage: UNK
     Dates: start: 20100409, end: 20100412
  3. VANCOMYCIN /00314402/ [Concomitant]
     Active Substance: VANCOMYCIN
     Indication: POST PROCEDURAL INFECTION
     Dosage: 1.5 G, 1X/DAY
     Route: 041
     Dates: start: 20100318
  4. ROPION [Concomitant]
     Active Substance: FLURBIPROFEN AXETIL
     Indication: POSTOPERATIVE ANALGESIA
     Dosage: 50 MG, 1X/DAY
     Route: 041
     Dates: start: 20100318, end: 20100407
  5. LOXONIN [Suspect]
     Active Substance: LOXOPROFEN SODIUM
     Indication: ANTIPYRESIS
     Dosage: 180 MG, 1X/DAY
     Route: 048
     Dates: start: 20100226, end: 20100320
  6. CEFAZOLIN SODIUM. [Concomitant]
     Active Substance: CEFAZOLIN SODIUM
     Indication: INFECTION PROPHYLAXIS
     Dosage: 2 G, 1X/DAY
     Route: 041
     Dates: start: 20100225, end: 20100312
  7. ZOSYN [Suspect]
     Active Substance: PIPERACILLIN SODIUM\TAZOBACTAM SODIUM
     Indication: POST PROCEDURAL INFECTION
     Dosage: 4.5 G, 3X/DAY
     Route: 041
     Dates: start: 20100318, end: 20100412
  8. ROPION [Concomitant]
     Active Substance: FLURBIPROFEN AXETIL
     Indication: ANTIPYRESIS
  9. ACETAMINOPHEN. [Concomitant]
     Active Substance: ACETAMINOPHEN
     Indication: ANTIPYRESIS
     Dosage: 200 MG, 1X/DAY
     Route: 048
     Dates: start: 20100407, end: 20100409
  10. CEFAZOLIN SODIUM. [Concomitant]
     Active Substance: CEFAZOLIN SODIUM
     Indication: POST PROCEDURAL INFECTION

REACTIONS (4)
  - Gastroduodenal ulcer [Recovering/Resolving]
  - Tubulointerstitial nephritis [Recovering/Resolving]
  - Cardiac failure [Unknown]
  - Arrhythmia [Recovering/Resolving]

NARRATIVE: CASE EVENT DATE: 20100411
